FAERS Safety Report 8782670 (Version 2)
Quarter: 2014Q2

REPORT INFORMATION
  Report Type: Spontaneous
  Country: DE (occurrence: DE)
  Receive Date: 20120913
  Receipt Date: 20131017
  Transmission Date: 20141212
  Serious: Yes (Other)
  Sender: FDA-Public Use
  Company Number: DE-PFIZER INC-2012221357

PATIENT
  Age: 16 Year
  Sex: Female

DRUGS (6)
  1. CARBOPLATIN [Suspect]
     Indication: BONE SARCOMA
     Dosage: UNK
  2. CISPLATIN [Suspect]
     Indication: BONE SARCOMA
     Dosage: UNK
  3. DOXORUBICIN HCL [Suspect]
     Indication: BONE SARCOMA
     Dosage: UNK
  4. ETOPOSIDE [Suspect]
     Indication: BONE SARCOMA
     Dosage: UNK
  5. IFOSFAMIDE [Suspect]
     Indication: BONE SARCOMA
     Dosage: UNK
  6. METHOTREXATE SODIUM [Suspect]
     Indication: BONE SARCOMA
     Dosage: UNK

REACTIONS (4)
  - Renal failure [Recovered/Resolved]
  - Deafness [Unknown]
  - Hypotension [Recovered/Resolved]
  - Abdominal pain [Recovered/Resolved]
